FAERS Safety Report 20610096 (Version 1)
Quarter: 2022Q1

REPORT INFORMATION
  Report Type: Spontaneous
  Country: FR (occurrence: FR)
  Receive Date: 20220318
  Receipt Date: 20220318
  Transmission Date: 20220423
  Serious: Yes (Hospitalization, Congenital Anomaly, Other)
  Sender: FDA-Public Use
  Company Number: FR-ABBVIE-22K-056-4321432-00

PATIENT
  Sex: Female

DRUGS (1)
  1. VALPROATE SODIUM [Suspect]
     Active Substance: VALPROATE SODIUM
     Indication: Maternal exposure timing unspecified
     Route: 064

REACTIONS (26)
  - Withdrawal syndrome [Unknown]
  - Hypotonia [Unknown]
  - Congenital musculoskeletal anomaly [Unknown]
  - Spine malformation [Unknown]
  - Foetal anticonvulsant syndrome [Unknown]
  - Epilepsy [Unknown]
  - Febrile convulsion [Unknown]
  - Dysmorphism [Unknown]
  - Foot deformity [Unknown]
  - Psychomotor skills impaired [Unknown]
  - Refraction disorder [Unknown]
  - Clinodactyly [Unknown]
  - Language disorder [Unknown]
  - Atrial septal defect [Unknown]
  - Behaviour disorder [Unknown]
  - Fine motor skill dysfunction [Unknown]
  - Frustration tolerance decreased [Unknown]
  - Ear disorder [Unknown]
  - Oropharyngeal discomfort [Unknown]
  - Respiratory distress [Unknown]
  - Nasal disorder [Unknown]
  - Enuresis [Unknown]
  - Learning disorder [Unknown]
  - Disturbance in attention [Unknown]
  - Limb malformation [Unknown]
  - Foetal exposure during pregnancy [Unknown]

NARRATIVE: CASE EVENT DATE: 20110415
